FAERS Safety Report 5715896-0 (Version None)
Quarter: 2008Q2

REPORT INFORMATION
  Report Type: 
  Country: None (occurrence: None)
  Receive Date: 20080424
  Receipt Date: 20080421
  Transmission Date: 20081010
  Serious: Yes (Other)
  Sender: FDA-Public Use
  Company Number: US-WYE-H03679408

PATIENT
  Sex: Male

DRUGS (2)
  1. TYGACIL [Suspect]
     Indication: PERIANAL ABSCESS
     Dosage: UNKNOWN
     Route: 042
  2. VANCOMYCIN [Concomitant]
     Indication: BACTERAEMIA
     Dosage: UNKNOWN

REACTIONS (1)
  - ENTEROCOCCAL INFECTION [None]
